FAERS Safety Report 24020226 (Version 1)
Quarter: 2024Q2

REPORT INFORMATION
  Report Type: Report from Study
  Country: AR (occurrence: AR)
  Receive Date: 20240627
  Receipt Date: 20240627
  Transmission Date: 20240716
  Serious: Yes (Death, Hospitalization)
  Sender: FDA-Public Use
  Company Number: AR-JNJFOC-20240671489

PATIENT
  Age: 72 Year
  Sex: Female
  Weight: 57 kg

DRUGS (1)
  1. SIMPONI [Suspect]
     Active Substance: GOLIMUMAB
     Indication: Rheumatoid arthritis
     Dosage: THERAPY END DATE: 2024.
     Route: 058
     Dates: start: 20230719

REACTIONS (5)
  - Pneumonia [Fatal]
  - Cardio-respiratory arrest [Fatal]
  - Syncope [Unknown]
  - Blood pressure decreased [Unknown]
  - Disorientation [Unknown]

NARRATIVE: CASE EVENT DATE: 20240601
